FAERS Safety Report 7278129-2 (Version None)
Quarter: 2011Q1

REPORT INFORMATION
  Report Type: 
  Country: None (occurrence: None)
  Receive Date: 20110207
  Receipt Date: 20110203
  Transmission Date: 20110831
  Serious: Yes (Hospitalization)
  Sender: FDA-Public Use
  Company Number: A0788866A

PATIENT
  Age: 47 Year
  Sex: Female
  Weight: 82.3 kg

DRUGS (15)
  1. PREDNISONE [Concomitant]
     Dates: start: 20050301, end: 20061031
  2. PLAQUENIL [Concomitant]
  3. NEXIUM [Concomitant]
  4. SYNTHROID [Concomitant]
  5. NEURONTIN [Concomitant]
  6. NITROGLYCERIN [Concomitant]
  7. ASPIRIN [Concomitant]
  8. AVANDAMET [Suspect]
     Route: 048
  9. AZATHIOPRINE [Concomitant]
  10. AVANDIA [Suspect]
     Dosage: 8MG PER DAY
     Route: 048
     Dates: start: 20000101, end: 20081101
  11. ALTACE [Concomitant]
  12. PREMARIN [Concomitant]
  13. LIPITOR [Concomitant]
     Dates: start: 20080111
  14. LORTAB [Concomitant]
  15. SOMA [Concomitant]

REACTIONS (6)
  - CARDIAC DISORDER [None]
  - TRANSIENT ISCHAEMIC ATTACK [None]
  - GAIT DISTURBANCE [None]
  - MYOCARDIAL ISCHAEMIA [None]
  - EYE DISORDER [None]
  - CEREBROVASCULAR ACCIDENT [None]
